FAERS Safety Report 17447346 (Version 23)
Quarter: 2022Q4

REPORT INFORMATION
  Report Type: Report from Study
  Country: US (occurrence: US)
  Receive Date: 20200221
  Receipt Date: 20221224
  Transmission Date: 20230112
  Serious: Yes (Hospitalization, Other)
  Sender: FDA-Public Use
  Company Number: NVSC2020US047767

PATIENT
  Age: 22 Year
  Sex: Female
  Weight: 81.633 kg

DRUGS (18)
  1. TREPROSTINIL [Suspect]
     Active Substance: TREPROSTINIL
     Indication: Pulmonary arterial hypertension
     Dosage: 111 NG/KG/MIN, (STRENGTH: 5 MG/ML), CONT,
     Route: 042
     Dates: start: 20190610
  2. TREPROSTINIL [Suspect]
     Active Substance: TREPROSTINIL
     Dosage: 112 NG/KG/MIN, (STRENGTH: 10 MG/ML), CONT,
     Route: 042
  3. TREPROSTINIL [Suspect]
     Active Substance: TREPROSTINIL
     Dosage: UNK UNK, CONT, 114 NG/KG/MIN, (STRENGTH: 5 MG/ML)
     Route: 042
  4. TREPROSTINIL [Suspect]
     Active Substance: TREPROSTINIL
     Dosage: UNK UNK, CONT, 114 NG/KG/MIN, (STRENGTH: 5 MG/ML)
     Route: 042
  5. TREPROSTINIL [Suspect]
     Active Substance: TREPROSTINIL
     Dosage: UNK UNK, CONT, 114 NG/KG/MIN, (STRENGTH: 5 MG/ML)
     Route: 042
  6. TREPROSTINIL [Suspect]
     Active Substance: TREPROSTINIL
     Dosage: UNK UNK, CONT, 113 NG/KG/MIN, (STRENGTH: 10 MG/ML)
     Route: 058
  7. TREPROSTINIL [Suspect]
     Active Substance: TREPROSTINIL
     Dosage: UNK UNK, CONT, 117 NG/KG/MIN, (STRENGTH: 10 MG/ML)
     Route: 058
  8. TREPROSTINIL [Suspect]
     Active Substance: TREPROSTINIL
     Dosage: UNK UNK, CONT, 117 NG/KG/MIN, (STRENGTH: 10 MG/ML)
     Route: 042
  9. TREPROSTINIL [Suspect]
     Active Substance: TREPROSTINIL
     Dosage: 117 NG/KG/MIN, CONT,, (STRENGTH: 10 MG/ML)
     Route: 042
  10. TREPROSTINIL [Suspect]
     Active Substance: TREPROSTINIL
     Dosage: 117 NG/KG/MIN, CONT,, (STRENGTH: 10 MG/ML)
     Route: 042
  11. TREPROSTINIL [Suspect]
     Active Substance: TREPROSTINIL
     Dosage: 117 NG/KG/MIN, CONT, (STRENGTH: 10 MG/ML)
     Route: 042
  12. TREPROSTINIL [Suspect]
     Active Substance: TREPROSTINIL
     Dosage: 112 NG/KG/MIN, CONT, (STRENGTH: 10 MG/ML)
     Route: 042
  13. TREPROSTINIL [Suspect]
     Active Substance: TREPROSTINIL
     Dosage: 112 NG/KG/MIN, CONT (STRENGTH: 10MG/ML)
     Route: 042
  14. ELIQUIS [Concomitant]
     Active Substance: APIXABAN
     Indication: Product used for unknown indication
     Dosage: UNK
     Route: 065
  15. TRACLEER [Concomitant]
     Active Substance: BOSENTAN
     Indication: Product used for unknown indication
     Dosage: UNK
     Route: 065
  16. WARFARIN [Concomitant]
     Active Substance: WARFARIN
     Indication: Product used for unknown indication
     Dosage: UNK
     Route: 065
  17. SILDENAFIL CITRATE [Concomitant]
     Active Substance: SILDENAFIL CITRATE
     Indication: Product used for unknown indication
     Dosage: UNK
     Route: 065
  18. BOSENTAN [Concomitant]
     Active Substance: BOSENTAN
     Indication: Product used for unknown indication
     Dosage: UNK
     Route: 065

REACTIONS (39)
  - Loss of consciousness [Recovering/Resolving]
  - Syncope [Unknown]
  - Complication associated with device [Unknown]
  - Dehydration [Unknown]
  - Vascular device infection [Unknown]
  - Hypothyroidism [Recovering/Resolving]
  - Respiratory distress [Unknown]
  - Thyrotoxic crisis [Unknown]
  - Thrombosis [Unknown]
  - Haemorrhage [Unknown]
  - Pain in jaw [Recovering/Resolving]
  - Irritable bowel syndrome [Unknown]
  - Infection [Unknown]
  - Feeling hot [Unknown]
  - Flushing [Unknown]
  - Blood pressure decreased [Unknown]
  - Heart rate increased [Unknown]
  - Hypotension [Unknown]
  - Oxygen saturation decreased [Unknown]
  - Skin discolouration [Unknown]
  - Dyspnoea [Recovered/Resolved]
  - Pallor [Unknown]
  - Peripheral swelling [Recovering/Resolving]
  - Diarrhoea [Unknown]
  - Rash [Unknown]
  - Headache [Unknown]
  - Device leakage [Recovered/Resolved]
  - Device leakage [Unknown]
  - Device failure [Unknown]
  - Product physical issue [Unknown]
  - Device infusion issue [Unknown]
  - Catheter site erythema [Unknown]
  - Catheter site discharge [Unknown]
  - Catheter site bruise [Unknown]
  - Catheter site pain [Unknown]
  - Infusion site pain [Recovered/Resolved]
  - Accidental exposure to product [Unknown]
  - Overdose [Unknown]
  - Drug ineffective [Unknown]

NARRATIVE: CASE EVENT DATE: 20200817
